FAERS Safety Report 7000963-4 (Version None)
Quarter: 2010Q3

REPORT INFORMATION
  Report Type: 
  Country: None (occurrence: None)
  Receive Date: 20100920
  Receipt Date: 20100713
  Transmission Date: 20110219
  Serious: No
  Sender: FDA-Public Use
  Company Number: US-ASTRAZENECA-2010SE34181

PATIENT
  Age: 21210 Day
  Sex: Male

DRUGS (8)
  1. SEROQUEL [Suspect]
     Route: 048
     Dates: start: 20040201
  2. ABILIFY [Concomitant]
     Indication: TACHYPHRENIA
     Route: 048
     Dates: start: 20091021
  3. ABILIFY [Concomitant]
     Indication: PSYCHOMOTOR HYPERACTIVITY
     Route: 048
     Dates: start: 20091021
  4. LYRICA [Concomitant]
     Route: 048
     Dates: start: 20091021
  5. TRAZODONE HCL [Concomitant]
     Route: 048
     Dates: start: 20091021
  6. PAXIL [Concomitant]
     Dates: start: 20040201
  7. TRILEPTAL [Concomitant]
     Dates: start: 20090407
  8. LAMICTAL [Concomitant]
     Dates: start: 20090407

REACTIONS (3)
  - DIABETES MELLITUS [None]
  - HEPATITIS B [None]
  - HEPATITIS C [None]
